FAERS Safety Report 10480219 (Version 1)
Quarter: 2014Q3

REPORT INFORMATION
  Report Type: Spontaneous
  Country: CA (occurrence: CA)
  Receive Date: 20140929
  Receipt Date: 20140929
  Transmission Date: 20150326
  Serious: Yes (Other)
  Sender: FDA-Public Use
  Company Number: CA-009507513-1409CAN012118

PATIENT
  Sex: Female

DRUGS (1)
  1. DRIXORAL [Suspect]
     Active Substance: DEXBROMPHENIRAMINE MALEATE\PSEUDOEPHEDRINE SULFATE
     Dosage: UNK
     Route: 065
     Dates: start: 1989

REACTIONS (3)
  - Drug dependence [Unknown]
  - Application site burn [Unknown]
  - Surgery [Unknown]
